FAERS Safety Report 23090526 (Version 1)
Quarter: 2023Q4

REPORT INFORMATION
  Report Type: Spontaneous
  Country: US (occurrence: US)
  Receive Date: 20231020
  Receipt Date: 20231020
  Transmission Date: 20240110
  Serious: Yes (Hospitalization, Other)
  Sender: FDA-Public Use
  Company Number: US-Fresenius Medical Care Renal Therapies Group-FMC-2310-001126

PATIENT
  Age: 56 Year
  Sex: Male
  Weight: 73 kg

DRUGS (18)
  1. DELFLEX WITH DEXTROSE 1.5% LOW MAGNESIUM LOW CALCIUM [Suspect]
     Active Substance: CALCIUM CHLORIDE\DEXTROSE\MAGNESIUM CHLORIDE\SODIUM CHLORIDE\SODIUM LACTATE
     Indication: End stage renal disease
     Dosage: EXCHANGES 5, FILL VOLUME 2200 ML, DWELL TIME 1.25 HOURS, LAST FILL 200 ML, DAYTIME DWELL N/A.
     Route: 033
  2. DELFLEX WITH DEXTROSE 2.5% LOW MAGNESIUM LOW CALCIUM [Suspect]
     Active Substance: CALCIUM CHLORIDE\DEXTROSE\MAGNESIUM CHLORIDE\SODIUM CHLORIDE\SODIUM LACTATE
     Indication: End stage renal disease
     Dosage: EXCHANGES 5, FILL VOLUME 2200 ML, DWELL TIME 1.25 HOURS, LAST FILL 200 ML, DAYTIME DWELL N/A.
     Route: 033
  3. DELFLEX WITH DEXTROSE 4.25% LOW MAGNESIUM LOW CALCIUM [Suspect]
     Active Substance: CALCIUM CHLORIDE\DEXTROSE\MAGNESIUM CHLORIDE\SODIUM CHLORIDE\SODIUM LACTATE
     Indication: End stage renal disease
     Dosage: EXCHANGES 5, FILL VOLUME 2200 ML, DWELL TIME 1.25 HOURS, LAST FILL 200 ML, DAYTIME DWELL N/A.
     Route: 033
  4. CYANOCOBALAMIN [Concomitant]
     Active Substance: CYANOCOBALAMIN
  5. EPOGEN [Concomitant]
     Active Substance: ERYTHROPOIETIN
  6. CALCITRIOL [Concomitant]
     Active Substance: CALCITRIOL
  7. COLACE [Concomitant]
     Active Substance: DOCUSATE SODIUM
  8. ASPIRIN [Concomitant]
     Active Substance: ASPIRIN
  9. CLOPIDOGREL [Concomitant]
     Active Substance: CLOPIDOGREL BISULFATE
  10. Gentamycin Topical [Concomitant]
  11. HEPARIN [Concomitant]
     Active Substance: HEPARIN SODIUM
  12. HYDRALAZINE [Concomitant]
     Active Substance: HYDRALAZINE HYDROCHLORIDE
  13. Insulin (Aspart, Glargine) [Concomitant]
  14. LANTHANUM CARBONATE [Concomitant]
     Active Substance: LANTHANUM CARBONATE
  15. LOVASTATIN [Concomitant]
     Active Substance: LOVASTATIN
  16. NIFEDIPINE [Concomitant]
     Active Substance: NIFEDIPINE
  17. SEVELAMER [Concomitant]
     Active Substance: SEVELAMER
  18. Multiple Eye Drops [Concomitant]

REACTIONS (1)
  - Peritonitis bacterial [Recovering/Resolving]
